FAERS Safety Report 6521373-X (Version None)
Quarter: 2009Q4

REPORT INFORMATION
  Report Type: 
  Country: None (occurrence: None)
  Receive Date: 20091230
  Receipt Date: 20091222
  Transmission Date: 20100525
  Serious: Yes (Hospitalization)
  Sender: FDA-Public Use
  Company Number: FI-ASTRAZENECA-2009SE33409

PATIENT
  Sex: Male

DRUGS (7)
  1. SEROQUEL XR [Suspect]
     Indication: BIPOLAR DISORDER
     Route: 048
     Dates: start: 20091201
  2. SEROQUEL XR [Suspect]
     Indication: SUBSTANCE ABUSE
     Route: 048
     Dates: start: 20091201
  3. SEROQUEL XR [Suspect]
     Route: 048
  4. SEROQUEL XR [Suspect]
     Route: 048
  5. SEROQUEL [Concomitant]
     Dosage: AS NEEDED
     Route: 048
  6. DEPRAKINE [Concomitant]
     Route: 048
  7. SERONIL [Concomitant]
     Route: 048

REACTIONS (4)
  - DIZZINESS [None]
  - HYPERTENSION [None]
  - OEDEMA PERIPHERAL [None]
  - PALPITATIONS [None]
